FAERS Safety Report 14806240 (Version 1)
Quarter: 2018Q2

REPORT INFORMATION
  Report Type: Spontaneous
  Country: US (occurrence: US)
  Receive Date: 20180425
  Receipt Date: 20180425
  Transmission Date: 20180711
  Serious: No
  Sender: FDA-Public Use
  Company Number: US-UPSHER-SMITH LABORATORIES, LLC-2017USL00021

PATIENT
  Sex: Female

DRUGS (3)
  1. QUDEXY XR [Suspect]
     Active Substance: TOPIRAMATE
     Dosage: 150 MG, 1X/DAY
     Dates: start: 201612
  2. DEPAKOTE [Suspect]
     Active Substance: DIVALPROEX SODIUM
  3. KEPPRA [Suspect]
     Active Substance: LEVETIRACETAM

REACTIONS (3)
  - Depressed mood [Unknown]
  - Weight decreased [Unknown]
  - Irritability [Unknown]
